FAERS Safety Report 13888168 (Version 2)
Quarter: 2017Q4

REPORT INFORMATION
  Report Type: Spontaneous
  Country: DE (occurrence: DE)
  Receive Date: 20170822
  Receipt Date: 20171023
  Transmission Date: 20180320
  Serious: Yes (Other)
  Sender: FDA-Public Use
  Company Number: DE-SUN PHARMACEUTICAL INDUSTRIES LTD-2017RR-147839

PATIENT
  Sex: Female
  Weight: 62 kg

DRUGS (4)
  1. CIPRO [Suspect]
     Active Substance: CIPROFLOXACIN HYDROCHLORIDE
     Indication: URINARY TRACT INFECTION
     Dosage: UNK
     Route: 048
     Dates: start: 201607
  2. SIMVASTATIN 20 MG [Concomitant]
     Active Substance: SIMVASTATIN
     Indication: BLOOD CHOLESTEROL INCREASED
     Dosage: 1/2 TABLET PER DAY
     Route: 065
  3. CIBACEN 10 MG [Concomitant]
     Indication: HYPERTENSION
     Dosage: 1/2 TABLET PER DAY
     Route: 065
  4. NEBIVOLOL-ACTAVIS 5MG [Concomitant]
     Indication: PRODUCT USED FOR UNKNOWN INDICATION
     Dosage: 1/4 TABLET PER DAY
     Route: 065

REACTIONS (1)
  - Neuritis [Recovered/Resolved]
